FAERS Safety Report 9959371 (Version 1)
Quarter: 2014Q1

REPORT INFORMATION
  Report Type: Spontaneous
  Country: US (occurrence: None)
  Receive Date: 20140227
  Receipt Date: 20140227
  Transmission Date: 20141002
  Serious: Yes (Hospitalization)
  Sender: FDA-Public Use
  Company Number: UTC-045187

PATIENT
  Age: 42 Year
  Sex: Female

DRUGS (12)
  1. TYVASO (6 MICGROGRAM, AEROSOL FOR INHALATION) (TREPROSTINIL SODIUM) [Suspect]
     Indication: PULMONARY ARTERIAL HYPERTENSION
     Dosage: 54 MCG 4 IN 1 D
     Dates: start: 20131202
  2. ADCIRCA (TADAFINIL) [Concomitant]
  3. DILANTIN (PHENYTOIN) [Concomitant]
  4. METHIAMZOLE (THIAMAZOLE) [Concomitant]
  5. LYRICA (PREGAMBLIN) [Concomitant]
  6. PARACETAMOL [Concomitant]
  7. HYDROCODONE BITARTRATE [Concomitant]
  8. POTASSIUM [Concomitant]
  9. METFORMIN [Concomitant]
  10. WARFARIN [Concomitant]
  11. ALLOPURINOL [Concomitant]
  12. FUROSEMIDE [Concomitant]

REACTIONS (2)
  - Cerebral haematoma [None]
  - Headache [None]
